FAERS Safety Report 9290004 (Version 1)
Quarter: 2013Q2

REPORT INFORMATION
  Report Type: Spontaneous
  Country: JP (occurrence: None)
  Receive Date: 20130510
  Receipt Date: 20130510
  Transmission Date: 20140414
  Serious: Yes (Other)
  Sender: FDA-Public Use
  Company Number: SYM-2013-03628

PATIENT
  Age: 64 Year
  Sex: Female

DRUGS (3)
  1. FLUOROURACIL [Suspect]
     Indication: COLORECTAL CANCER
  2. OXALIPLATIN [Suspect]
     Indication: COLORECTAL CANCER
  3. LEUCOVORIN [Suspect]
     Indication: COLORECTAL CANCER

REACTIONS (2)
  - Neutrophil count decreased [None]
  - White blood cell count decreased [None]
